FAERS Safety Report 13495673 (Version 1)
Quarter: 2017Q2

REPORT INFORMATION
  Report Type: Spontaneous
  Country: US (occurrence: US)
  Receive Date: 20170427
  Receipt Date: 20170427
  Transmission Date: 20170830
  Serious: Yes (Hospitalization, Other)
  Sender: FDA-Public Use
  Company Number: None

PATIENT
  Age: 63 Year
  Sex: Male
  Weight: 117.75 kg

DRUGS (2)
  1. TRAZODONE [Suspect]
     Active Substance: TRAZODONE HYDROCHLORIDE
     Indication: SLEEP DISORDER
  2. TRAMADOL. [Suspect]
     Active Substance: TRAMADOL
     Indication: PAIN

REACTIONS (1)
  - Mental status changes [None]

NARRATIVE: CASE EVENT DATE: 20170328
